FAERS Safety Report 19234269 (Version 3)
Quarter: 2021Q2

REPORT INFORMATION
  Report Type: Spontaneous
  Country: US (occurrence: US)
  Receive Date: 20210508
  Receipt Date: 20210607
  Transmission Date: 20210717
  Serious: No
  Sender: FDA-Public Use
  Company Number: US-ELI_LILLY_AND_COMPANY-US202105002539

PATIENT
  Sex: Male

DRUGS (4)
  1. CALCIUM [Concomitant]
     Active Substance: CALCIUM
     Indication: PRODUCT USED FOR UNKNOWN INDICATION
  2. FORTEO [Suspect]
     Active Substance: TERIPARATIDE
     Indication: PRODUCT USED FOR UNKNOWN INDICATION
     Dosage: UNK UNK, UNKNOWN
     Route: 065
     Dates: start: 202103, end: 20210430
  3. FORTEO [Suspect]
     Active Substance: TERIPARATIDE
     Dosage: UNK UNK, QOD
     Route: 065
  4. FORTEO [Suspect]
     Active Substance: TERIPARATIDE
     Dosage: UNK, UNKNOWN
     Route: 065
     Dates: start: 202103

REACTIONS (5)
  - Inappropriate schedule of product administration [Unknown]
  - Muscle spasms [Not Recovered/Not Resolved]
  - Pyrexia [Unknown]
  - Muscle spasms [Recovering/Resolving]
  - Mobility decreased [Unknown]
